FAERS Safety Report 14523551 (Version 1)
Quarter: 2018Q1

REPORT INFORMATION
  Report Type: Spontaneous
  Country: PE (occurrence: PE)
  Receive Date: 20180212
  Receipt Date: 20180212
  Transmission Date: 20180509
  Serious: Yes (Other)
  Sender: FDA-Public Use
  Company Number: PE-MERCK KGAA-2041837

PATIENT
  Sex: Female

DRUGS (1)
  1. NOVOTHYROX [Suspect]
     Active Substance: LEVOTHYROXINE SODIUM
     Indication: HYPERTHYROIDISM

REACTIONS (8)
  - Muscle contracture [None]
  - Loss of libido [None]
  - Paraesthesia [None]
  - Homicidal ideation [None]
  - Phobia [None]
  - Crying [None]
  - Dry skin [None]
  - Anxiety [None]
